FAERS Safety Report 5179590-X (Version None)
Quarter: 2006Q4

REPORT INFORMATION
  Report Type: 
  Country: None (occurrence: None)
  Receive Date: 20061211
  Receipt Date: 20061128
  Transmission Date: 20070319
  Serious: Yes (Hospitalization)
  Sender: FDA-Public Use
  Company Number: 2006147098

PATIENT

DRUGS (8)
  1. FELDENE [Suspect]
     Dates: end: 20060913
  2. XATRAL (ALFUZOSIN) [Suspect]
     Dosage: ORAL
     Route: 048
     Dates: end: 20060913
  3. ADANCOR (NICORANDIL) [Concomitant]
  4. PANTOPRAZOLE SODIUM [Concomitant]
  5. DILITIAZEM HYDROCHLORIDE (DILTIAZEM HYDROCHLORIDE) [Concomitant]
  6. FINASTERIDE [Concomitant]
  7. ALLOPURINOL [Concomitant]
  8. COAPROVEL (HYDROCHLOROTHIAZIDE, IRBESARTAN) [Suspect]
     Dosage: ORAL
     Route: 048
     Dates: end: 20060913

REACTIONS (5)
  - CELL DEATH [None]
  - DIARRHOEA [None]
  - RENAL CYST [None]
  - RENAL FAILURE [None]
  - RHABDOMYOLYSIS [None]
